FAERS Safety Report 10060603 (Version 2)
Quarter: 2014Q2

REPORT INFORMATION
  Report Type: Spontaneous
  Country: IE (occurrence: IE)
  Receive Date: 20140404
  Receipt Date: 20140404
  Transmission Date: 20141212
  Serious: Yes (Hospitalization, Disabling, Other)
  Sender: FDA-Public Use
  Company Number: IE-ELI_LILLY_AND_COMPANY-IE201403007795

PATIENT
  Sex: Female
  Weight: 84.7 kg

DRUGS (2)
  1. EFIENT [Suspect]
     Indication: PERCUTANEOUS CORONARY INTERVENTION
     Dosage: 10 MG, UNK
     Route: 065
     Dates: start: 201311, end: 201403
  2. ASPIRIN [Concomitant]
     Dosage: 75 MG, QD
     Route: 065
     Dates: start: 2010

REACTIONS (3)
  - Syncope [Not Recovered/Not Resolved]
  - Gastrointestinal haemorrhage [Not Recovered/Not Resolved]
  - Haemoglobin decreased [Not Recovered/Not Resolved]
